FAERS Safety Report 17111170 (Version 4)
Quarter: 2021Q1

REPORT INFORMATION
  Report Type: Other
  Country: KR (occurrence: KR)
  Receive Date: 20191204
  Receipt Date: 20210310
  Transmission Date: 20210419
  Serious: Yes (Other)
  Sender: FDA-Public Use
  Company Number: KR-ROCHE-2480587

PATIENT
  Age: 48 Year
  Sex: Female

DRUGS (14)
  1. ENTELON [Concomitant]
     Indication: POSTMASTECTOMY LYMPHOEDEMA SYNDROME
     Route: 048
     Dates: start: 20191015
  2. PACLITAXEL. [Concomitant]
     Active Substance: PACLITAXEL
  3. CAROL?F [Concomitant]
     Indication: PYREXIA
     Route: 048
     Dates: start: 20200204, end: 20200206
  4. TYLENOL ER [Concomitant]
     Active Substance: ACETAMINOPHEN
     Indication: PYREXIA
     Route: 048
     Dates: start: 20200204, end: 20200206
  5. HERZUMA [Suspect]
     Active Substance: TRASTUZUMAB-PKRB
     Indication: BREAST CANCER
     Route: 042
     Dates: start: 20191004, end: 20191004
  6. PERTUZUMAB. [Suspect]
     Active Substance: PERTUZUMAB
     Indication: BREAST CANCER
     Route: 065
     Dates: start: 20191004
  7. BANAN [Concomitant]
     Active Substance: CEFPODOXIME PROXETIL
     Route: 048
     Dates: start: 20191126, end: 20191205
  8. HERZUMA [Suspect]
     Active Substance: TRASTUZUMAB-PKRB
     Route: 042
     Dates: start: 20191025, end: 20200207
  9. BANAN [Concomitant]
     Active Substance: CEFPODOXIME PROXETIL
     Route: 048
     Dates: start: 20200204, end: 20200206
  10. PERTUZUMAB. [Suspect]
     Active Substance: PERTUZUMAB
     Dosage: DATE OF SUBSEQUENT DOSES OF PERTUZUMAB 420 MG: 15/NOV/2019, 06/DEC/2019, 27/DEC/2019, 17/JAN/2020 AN
     Route: 065
     Dates: start: 20191025
  11. DOCETAXEL. [Suspect]
     Active Substance: DOCETAXEL
     Route: 042
     Dates: start: 20191115, end: 20200207
  12. SOLETON [Concomitant]
     Active Substance: ZALTOPROFEN
     Route: 048
     Dates: start: 2019, end: 20201210
  13. DOCETAXEL. [Suspect]
     Active Substance: DOCETAXEL
     Indication: BREAST CANCER
     Route: 042
     Dates: start: 20191004, end: 20191025
  14. PENIRAMIN [Concomitant]
     Route: 042
     Dates: start: 20191004, end: 20200207

REACTIONS (8)
  - Alanine aminotransferase increased [Recovered/Resolved]
  - Vomiting [Recovered/Resolved]
  - Dermatitis bullous [Recovering/Resolving]
  - Pyrexia [Recovered/Resolved]
  - Diarrhoea [Recovered/Resolved]
  - Neutrophil count decreased [Recovered/Resolved]
  - Aspartate aminotransferase increased [Recovered/Resolved]
  - Pruritus [Recovering/Resolving]

NARRATIVE: CASE EVENT DATE: 20191011
